FAERS Safety Report 22283265 (Version 1)
Quarter: 2023Q2

REPORT INFORMATION
  Report Type: Spontaneous
  Country: US (occurrence: None)
  Receive Date: 20230430
  Receipt Date: 20230430
  Transmission Date: 20230722
  Serious: Yes (Other)
  Sender: FDA-Public Use
  Company Number: None

PATIENT
  Age: 38 Year
  Sex: Female
  Weight: 54.43 kg

DRUGS (3)
  1. MIRENA [Suspect]
     Active Substance: LEVONORGESTREL
  2. VITAMIN C [Concomitant]
     Active Substance: ASCORBIC ACID
  3. CALCIUM [Concomitant]
     Active Substance: CALCIUM

REACTIONS (10)
  - Muscle spasms [None]
  - Headache [None]
  - Asthenia [None]
  - Mood swings [None]
  - Hair growth abnormal [None]
  - Hormone level abnormal [None]
  - Therapy cessation [None]
  - Heavy menstrual bleeding [None]
  - Disturbance in attention [None]
  - Sexual relationship change [None]

NARRATIVE: CASE EVENT DATE: 20210302
